FAERS Safety Report 13854342 (Version 1)
Quarter: 2017Q3

REPORT INFORMATION
  Report Type: Spontaneous
  Country: US (occurrence: US)
  Receive Date: 20170810
  Receipt Date: 20170810
  Transmission Date: 20171127
  Serious: No
  Sender: FDA-Public Use
  Company Number: US-GLAXOSMITHKLINE-US2017123753

PATIENT
  Sex: Female

DRUGS (13)
  1. CINNAMON. [Concomitant]
     Active Substance: CINNAMON
  2. CHIA [Concomitant]
  3. INVOKANA [Concomitant]
     Active Substance: CANAGLIFLOZIN
  4. LEVOTHYROXINE. [Concomitant]
     Active Substance: LEVOTHYROXINE
  5. GLUCOSE [Concomitant]
     Active Substance: DEXTROSE
  6. TANZEUM [Suspect]
     Active Substance: ALBIGLUTIDE
     Indication: TYPE 2 DIABETES MELLITUS
     Dosage: UNK, U
     Route: 042
     Dates: start: 2015
  7. FIBER [Concomitant]
     Active Substance: PSYLLIUM HUSK
  8. GLIPIZIDE. [Concomitant]
     Active Substance: GLIPIZIDE
  9. LOSARTAN. [Concomitant]
     Active Substance: LOSARTAN
  10. ONGLYZA [Concomitant]
     Active Substance: SAXAGLIPTIN HYDROCHLORIDE
  11. CHROMIUM [Concomitant]
     Active Substance: CHROMIC CHLORIDE\CHROMIUM
  12. FLAX SEEDS [Concomitant]
     Active Substance: FLAX SEEDS
  13. ASPIRIN (BABY) [Concomitant]
     Active Substance: ASPIRIN

REACTIONS (3)
  - Blood glucose increased [Recovering/Resolving]
  - Wound [Recovered/Resolved]
  - Weight decreased [Unknown]

NARRATIVE: CASE EVENT DATE: 201708
